FAERS Safety Report 24747759 (Version 2)
Quarter: 2024Q4

REPORT INFORMATION
  Report Type: Spontaneous
  Country: CN (occurrence: CN)
  Receive Date: 20241218
  Receipt Date: 20241230
  Transmission Date: 20250115
  Serious: Yes (Other)
  Sender: NOVARTIS
  Company Number: CN-002147023-NVSC2024CN239473

PATIENT
  Sex: Female

DRUGS (2)
  1. DIOVAN [Suspect]
     Active Substance: VALSARTAN
     Indication: Hypertension
     Dosage: 1 PILL (80MG), SOMETIMES 2 PILLS/TIME
     Route: 048
     Dates: end: 20241213
  2. DIOVAN [Suspect]
     Active Substance: VALSARTAN
     Dosage: 1 PILL (80MG), SOMETIMES 2 PILLS/TIME
     Route: 048
     Dates: end: 20241213

REACTIONS (2)
  - Blood pressure systolic increased [Recovered/Resolved]
  - Counterfeit product administered [Unknown]

NARRATIVE: CASE EVENT DATE: 20241212
